FAERS Safety Report 11740017 (Version 2)
Quarter: 2015Q4

REPORT INFORMATION
  Report Type: Spontaneous
  Country: US (occurrence: US)
  Receive Date: 20151110
  Receipt Date: 20151120
  Transmission Date: 20160304
  Serious: No
  Sender: FDA-Public Use
  Company Number: US-ELI_LILLY_AND_COMPANY-US201109005887

PATIENT
  Sex: Female

DRUGS (3)
  1. FORTEO [Suspect]
     Active Substance: TERIPARATIDE
     Indication: OSTEOPOROSIS
     Dosage: 20 UG, QD
     Route: 065
     Dates: start: 201012
  2. FORTEO [Suspect]
     Active Substance: TERIPARATIDE
     Dosage: 20 UG, QD
     Route: 065
     Dates: end: 2012
  3. PREDNISONE. [Concomitant]
     Active Substance: PREDNISONE

REACTIONS (9)
  - Pain in extremity [Unknown]
  - Gait disturbance [Unknown]
  - Muscle spasms [Recovered/Resolved]
  - Musculoskeletal discomfort [Unknown]
  - Limb discomfort [Unknown]
  - Tendon disorder [Unknown]
  - Drug interaction [Unknown]
  - Arthralgia [Unknown]
  - Joint crepitation [Unknown]
